FAERS Safety Report 12268880 (Version 1)
Quarter: 2016Q2

REPORT INFORMATION
  Report Type: Spontaneous
  Country: JP (occurrence: JP)
  Receive Date: 20160414
  Receipt Date: 20160414
  Transmission Date: 20160815
  Serious: Yes (Other)
  Sender: FDA-Public Use
  Company Number: JP-PFIZER INC-2016212131

PATIENT
  Age: 84 Year
  Sex: Female

DRUGS (1)
  1. JZOLOFT [Suspect]
     Active Substance: SERTRALINE HYDROCHLORIDE
     Dosage: UNK
     Route: 048

REACTIONS (3)
  - Delirium [Unknown]
  - Drug ineffective [Unknown]
  - Drug withdrawal syndrome [Unknown]
